FAERS Safety Report 8853427 (Version 1)
Quarter: 2012Q4

REPORT INFORMATION
  Report Type: 
  Country: US (occurrence: US)
  Receive Date: 20121022
  Receipt Date: 20121022
  Transmission Date: 20130627
  Serious: Yes (Other)
  Sender: FDA-Public Use
  Company Number: US-GLAXOSMITHKLINE-A0972197A

PATIENT
  Age: 86 Year
  Sex: Female

DRUGS (5)
  1. PROMACTA [Suspect]
     Indication: IDIOPATHIC THROMBOCYTOPENIC PURPURA
     Route: 048
     Dates: start: 20111028
  2. POTASSIUM CHLORIDE [Concomitant]
  3. DIOVAN HCT [Concomitant]
  4. BYSTOLIC [Concomitant]
  5. ULTRACET [Concomitant]

REACTIONS (3)
  - Deafness unilateral [Not Recovered/Not Resolved]
  - Eye disorder [Not Recovered/Not Resolved]
  - Eye pruritus [Not Recovered/Not Resolved]
